FAERS Safety Report 12769940 (Version 2)
Quarter: 2016Q3

REPORT INFORMATION
  Report Type: Spontaneous
  Country: GB (occurrence: GB)
  Receive Date: 20160922
  Receipt Date: 20160928
  Transmission Date: 20161109
  Serious: Yes (Death, Other)
  Sender: FDA-Public Use
  Company Number: GB-ACCORD-044084

PATIENT
  Age: 33 Year
  Sex: Male
  Weight: 66 kg

DRUGS (6)
  1. SERTRALINE [Concomitant]
     Active Substance: SERTRALINE HYDROCHLORIDE
     Indication: DEPRESSION
     Dosage: NOCTE
     Route: 048
     Dates: start: 2013
  2. LYRICA [Suspect]
     Active Substance: PREGABALIN
     Dosage: PRESCRIBED AT 450 MG PER FOR ANXIETY FROM FEB-2015?TAKEN ABOUT 12 TABLETS OF PREGABALIN 150 MG EACH
  3. ACAMPROSATE/ACAMPROSATE CALCIUM [Concomitant]
     Indication: ALCOHOLISM
     Dosage: 666 MG, 3X/DAY
     Route: 048
     Dates: start: 2014
  4. AMITRIPTYLINE [Concomitant]
     Active Substance: AMITRIPTYLINE
     Indication: PAIN
     Dosage: NOCTE
     Route: 048
  5. QUETIAPINE. [Suspect]
     Active Substance: QUETIAPINE
     Indication: MOOD ALTERED
     Dosage: NOCTE
  6. ZOPICLONE [Concomitant]
     Active Substance: ZOPICLONE
     Indication: HYPNOTHERAPY
     Dosage: NOCTE
     Route: 048
     Dates: start: 2013

REACTIONS (6)
  - Toxicity to various agents [Fatal]
  - Ketoacidosis [Not Recovered/Not Resolved]
  - Depressed level of consciousness [Not Recovered/Not Resolved]
  - Overdose [Fatal]
  - Somnolence [Not Recovered/Not Resolved]
  - Brain hypoxia [Not Recovered/Not Resolved]

NARRATIVE: CASE EVENT DATE: 201602
